FAERS Safety Report 6300436-8 (Version None)
Quarter: 2009Q3

REPORT INFORMATION
  Report Type: 
  Country: None (occurrence: None)
  Receive Date: 20090806
  Receipt Date: 20081023
  Transmission Date: 20100115
  Serious: No
  Sender: FDA-Public Use
  Company Number: US-ABBOTT-08P-163-0478663-00

PATIENT
  Sex: Female

DRUGS (5)
  1. DEPAKOTE ER [Suspect]
     Indication: BIPOLAR DISORDER
     Route: 048
     Dates: start: 20080101
  2. DEPAKOTE ER [Suspect]
     Route: 048
     Dates: start: 20080301
  3. DEPAKOTE ER [Suspect]
     Route: 048
     Dates: start: 20080601
  4. DEPAKOTE ER [Suspect]
     Route: 048
     Dates: start: 20080801
  5. ALPRAZOLAM [Concomitant]
     Indication: ANXIETY
     Route: 048

REACTIONS (6)
  - ALOPECIA [None]
  - BLOOD IRON DECREASED [None]
  - DRY SKIN [None]
  - PRURITUS [None]
  - TREMOR [None]
  - URTICARIA [None]
